FAERS Safety Report 6252063-9 (Version None)
Quarter: 2009Q2

REPORT INFORMATION
  Report Type: 
  Country: None (occurrence: None)
  Receive Date: 20090630
  Receipt Date: 20050425
  Transmission Date: 20091009
  Serious: Yes (Hospitalization)
  Sender: FDA-Public Use
  Company Number: US-ROCHE-638746

PATIENT
  Sex: Male

DRUGS (7)
  1. ENFUVIRTIDE [Suspect]
     Route: 065
     Dates: start: 20040701, end: 20061225
  2. KALETRA [Concomitant]
     Dates: start: 20020620, end: 20050711
  3. VIREAD [Concomitant]
     Dates: start: 20021017, end: 20061225
  4. INVIRASE [Concomitant]
     Dates: start: 20040415, end: 20050711
  5. RETROVIR [Concomitant]
     Dates: start: 20040907, end: 20061225
  6. BACTRIM DS [Concomitant]
     Dates: end: 20080814
  7. ZITHROMAX [Concomitant]
     Dates: end: 20061003

REACTIONS (5)
  - ANAEMIA [None]
  - CANDIDIASIS [None]
  - DIARRHOEA [None]
  - HEPATITIS B [None]
  - HIV INFECTION [None]
